FAERS Safety Report 7285820-0 (Version None)
Quarter: 2011Q2

REPORT INFORMATION
  Report Type: 
  Country: None (occurrence: None)
  Receive Date: 20110128
  Receipt Date: 20110113
  Transmission Date: 20111010
  Serious: Yes (Death, Hospitalization)
  Sender: FDA-Public Use
  Company Number: DEP_00464_2011

PATIENT
  Age: 45 Year
  Sex: Female

DRUGS (8)
  1. METFORMIN HYDROCHLORIDE [Suspect]
     Dosage: (9000 MG 1X, OVERDOSE AMOUNT ORAL)
     Route: 048
  2. ZOLPIDEM [Suspect]
     Dosage: (OVERDOSE AMOUNT ORAL)
     Route: 048
  3. SITAGLIPTIN [Suspect]
     Dosage: (OVERDOSE AMOUNT ORAL)
     Route: 048
  4. METOPROLOL TARTRATE [Suspect]
     Dosage: (250 MG 1X, OVERDOSE AMOUNT ORAL)
     Route: 048
  5. FENOFIBRATE [Suspect]
     Dosage: (OVERDOSE AMOUNT ORAL)
     Route: 048
  6. HYDROCHLOROTHIAZIDE [Suspect]
     Dosage: (OVERDOSE AMOUNT ORAL)
     Route: 048
  7. AMLODIPINE [Suspect]
     Dosage: (300 MG 1X, OVERDOSE AMOUNT (UP TO 300 MG) ORAL)
     Route: 048
  8. IRBESARTAN [Suspect]
     Dosage: (OVERDOSE AMOUNT ORAL)
     Route: 048

REACTIONS (27)
  - COMPLETED SUICIDE [None]
  - BLOOD SODIUM INCREASED [None]
  - UNRESPONSIVE TO STIMULI [None]
  - POISONING [None]
  - RESPIRATORY RATE INCREASED [None]
  - HAEMOGLOBIN DECREASED [None]
  - MULTIPLE DRUG OVERDOSE INTENTIONAL [None]
  - BODY TEMPERATURE DECREASED [None]
  - HAEMODIALYSIS [None]
  - PUPIL FIXED [None]
  - HEART RATE DECREASED [None]
  - ALANINE AMINOTRANSFERASE INCREASED [None]
  - BLOOD SODIUM DECREASED [None]
  - HYPOTENSION [None]
  - FAECAL INCONTINENCE [None]
  - ATRIOVENTRICULAR BLOCK FIRST DEGREE [None]
  - BLOOD GLUCOSE INCREASED [None]
  - DYSARTHRIA [None]
  - SELF-MEDICATION [None]
  - BLOOD CHLORIDE INCREASED [None]
  - ELECTROCARDIOGRAM QRS COMPLEX SHORTENED [None]
  - WHITE BLOOD CELL COUNT INCREASED [None]
  - ASPARTATE AMINOTRANSFERASE INCREASED [None]
  - LACTIC ACIDOSIS [None]
  - SOMNOLENCE [None]
  - LETHARGY [None]
  - BLOOD POTASSIUM DECREASED [None]
